FAERS Safety Report 9240140 (Version 1)
Quarter: 2013Q2

REPORT INFORMATION
  Report Type: Spontaneous
  Country: US (occurrence: None)
  Receive Date: 20130418
  Receipt Date: 20130418
  Transmission Date: 20140414
  Serious: No
  Sender: FDA-Public Use
  Company Number: None

PATIENT
  Sex: 0

DRUGS (1)
  1. PARAGARD [Suspect]

REACTIONS (3)
  - Palpitations [None]
  - Muscle spasms [None]
  - Syncope [None]
